FAERS Safety Report 6985783-9 (Version None)
Quarter: 2010Q3

REPORT INFORMATION
  Report Type: 
  Country: None (occurrence: None)
  Receive Date: 20100915
  Receipt Date: 20100811
  Transmission Date: 20110219
  Serious: No
  Sender: FDA-Public Use
  Company Number: US-BAYER-201019725BCC

PATIENT
  Age: 80 Year
  Sex: Female
  Weight: 59 kg

DRUGS (10)
  1. ALEVE (CAPLET) [Suspect]
     Indication: SCIATICA
     Dosage: UNIT DOSE: 220 MG
     Route: 048
     Dates: start: 20070101, end: 20070101
  2. MILK OF MAGNESIA TAB [Suspect]
     Indication: CONSTIPATION
     Route: 048
     Dates: start: 20050101
  3. GLUCOPHAGE [Concomitant]
     Route: 065
  4. SYNTHROID [Concomitant]
     Route: 065
  5. COZAAR [Concomitant]
     Route: 065
  6. LOZOL [Concomitant]
     Route: 065
  7. STARLIX [Concomitant]
     Route: 065
  8. NEXIUM [Concomitant]
     Route: 065
  9. TRICOR [Concomitant]
     Route: 065
  10. CLONIDINE HCL [Concomitant]
     Route: 065

REACTIONS (3)
  - ANXIETY [None]
  - CONSTIPATION [None]
  - FEELING JITTERY [None]
